FAERS Safety Report 5300559-6 (Version None)
Quarter: 2007Q2

REPORT INFORMATION
  Report Type: 
  Country: None (occurrence: None)
  Receive Date: 20070418
  Receipt Date: 20070413
  Transmission Date: 20071010
  Serious: Yes (Hospitalization)
  Sender: FDA-Public Use
  Company Number: US-GLAXOSMITHKLINE-A0640760A

PATIENT
  Sex: Male

DRUGS (2)
  1. AVODART [Suspect]
     Indication: BENIGN PROSTATIC HYPERPLASIA
     Dosage: .5MG PER DAY
     Route: 048
  2. VERAPAMIL [Suspect]

REACTIONS (5)
  - ABDOMINAL PAIN [None]
  - CARDIAC ARREST [None]
  - DRUG INTERACTION [None]
  - PULSE ABSENT [None]
  - SYNCOPE VASOVAGAL [None]
